FAERS Safety Report 8031243-6 (Version None)
Quarter: 2012Q1

REPORT INFORMATION
  Report Type: 
  Country: None (occurrence: None)
  Receive Date: 20120109
  Receipt Date: 20120103
  Transmission Date: 20120608
  Serious: Yes (Other)
  Sender: FDA-Public Use
  Company Number: JP-MERCK-1112USA02193

PATIENT
  Age: 21 Year
  Sex: Female

DRUGS (3)
  1. DECADRON [Suspect]
     Indication: HISTIOCYTOSIS HAEMATOPHAGIC
     Route: 048
  2. ETOPOSIDE [Concomitant]
     Route: 065
  3. CYCLOSPORINE [Concomitant]
     Route: 048

REACTIONS (2)
  - PSYCHOTIC DISORDER [None]
  - DISSEMINATED INTRAVASCULAR COAGULATION [None]
